FAERS Safety Report 25985258 (Version 1)
Quarter: 2025Q4

REPORT INFORMATION
  Report Type: Spontaneous
  Country: US (occurrence: US)
  Receive Date: 20251031
  Receipt Date: 20251031
  Transmission Date: 20260117
  Serious: No
  Sender: Tarsus Pharmaceuticals
  Company Number: US-TARSUS PHARMACEUTICALS-TSP-US-2025-000841

PATIENT

DRUGS (1)
  1. XDEMVY [Suspect]
     Active Substance: LOTILANER
     Indication: Ocular demodicosis
     Dosage: 1 DROP, BID
     Route: 047
     Dates: start: 20250919

REACTIONS (8)
  - Eye swelling [Unknown]
  - Ocular hyperaemia [Unknown]
  - Rash macular [Unknown]
  - Condition aggravated [Unknown]
  - Periorbital irritation [Unknown]
  - Dry skin [Unknown]
  - Skin exfoliation [Unknown]
  - Product packaging quantity issue [Unknown]
